FAERS Safety Report 4874422-9 (Version None)
Quarter: 2005Q4

REPORT INFORMATION
  Report Type: 
  Country: None (occurrence: None)
  Receive Date: 20051201
  Receipt Date: 20050810
  Transmission Date: 20060501
  Serious: No
  Sender: FDA-Public Use
  Company Number: 2005PV001052

PATIENT
  Age: 48 Year
  Sex: Female
  Weight: 102.0593 kg

DRUGS (8)
  1. BYETTA [Suspect]
     Indication: DIABETES MELLITUS NON-INSULIN-DEPENDENT
     Dosage: 5 MCG;QD;SC
     Route: 058
     Dates: start: 20050721
  2. COZAAR [Concomitant]
  3. RANITIDINE HCL [Concomitant]
  4. AMITRIPTYLINE HCL [Concomitant]
  5. PAROXETINE HCL [Concomitant]
  6. SYNTHROID [Concomitant]
  7. HYDROCODONE BITARTRATE [Concomitant]
  8. LASIX [Concomitant]

REACTIONS (2)
  - ALOPECIA [None]
  - WEIGHT INCREASED [None]
